FAERS Safety Report 9254178 (Version 2)
Quarter: 2013Q2

REPORT INFORMATION
  Report Type: Spontaneous
  Country: GB (occurrence: GB)
  Receive Date: 20130425
  Receipt Date: 20130516
  Transmission Date: 20140414
  Serious: Yes (Hospitalization)
  Sender: FDA-Public Use
  Company Number: PHFR2013GB001620

PATIENT
  Age: 41 Year
  Sex: Female

DRUGS (2)
  1. CLOZARIL [Suspect]
     Dosage: UNK
     Route: 048
     Dates: start: 20010620
  2. CLOZARIL [Suspect]
     Dosage: 350 MG, UNK
     Route: 048

REACTIONS (2)
  - Mental impairment [Recovering/Resolving]
  - Eosinophil count increased [Recovered/Resolved]
